FAERS Safety Report 6287571-8 (Version None)
Quarter: 2009Q3

REPORT INFORMATION
  Report Type: 
  Country: None (occurrence: None)
  Receive Date: 20090727
  Receipt Date: 20090716
  Transmission Date: 20100115
  Serious: Yes (Other)
  Sender: FDA-Public Use
  Company Number: 237058K09USA

PATIENT
  Age: 55 Year
  Sex: Male

DRUGS (3)
  1. REBIF [Suspect]
     Indication: MULTIPLE SCLEROSIS
     Dosage: 44 MCG, 3 IN 1 WEEKS, SUBCUTANEOUS
     Route: 058
     Dates: start: 20081110, end: 20090601
  2. KLONOPIN [Concomitant]
  3. BACLOFEN [Concomitant]

REACTIONS (3)
  - ARTHRALGIA [None]
  - HYPERTENSION [None]
  - MUSCLE SPASMS [None]
